FAERS Safety Report 20751762 (Version 3)
Quarter: 2022Q4

REPORT INFORMATION
  Report Type: Spontaneous
  Country: US (occurrence: US)
  Receive Date: 20220426
  Receipt Date: 20221003
  Transmission Date: 20230112
  Serious: No
  Sender: FDA-Public Use
  Company Number: US-PFIZER INC-202200322818

PATIENT
  Age: 57 Year
  Sex: Female

DRUGS (11)
  1. IBRANCE [Suspect]
     Active Substance: PALBOCICLIB
     Indication: Breast cancer female
     Dosage: 125 MG, CYCLIC (TAKE 1 TABLET BY MOUTH DAILY ON DAYS 1-21, THEN OFF FOR 7 DAYS OF 28 DAY CYCLE)
     Route: 048
     Dates: start: 20211109
  2. DEXAMETHASONE [Concomitant]
     Active Substance: DEXAMETHASONE
     Dosage: 4 MG
  3. GABAPENTIN [Concomitant]
     Active Substance: GABAPENTIN
     Dosage: 100 MG
  4. HYDROCODONE\IBUPROFEN [Concomitant]
     Active Substance: HYDROCODONE\IBUPROFEN
     Dosage: UNK (7.5-200)
  5. LETROZOLE [Concomitant]
     Active Substance: LETROZOLE
     Dosage: 2.5 MG
  6. MELOXICAM [Concomitant]
     Active Substance: MELOXICAM
     Dosage: 15 MG
  7. NYSTATIN [Concomitant]
     Active Substance: NYSTATIN
     Dosage: UNK
  8. ONDANSETRON [Concomitant]
     Active Substance: ONDANSETRON
     Dosage: 4 MG
     Route: 048
  9. SERTRALINE [Concomitant]
     Active Substance: SERTRALINE HYDROCHLORIDE
     Dosage: 50 MG
  10. ZOLEDRONIC [Concomitant]
     Active Substance: ZOLEDRONIC ACID
     Dosage: UNK (4MG/5ML)
  11. ZOLEDRONIC [Concomitant]
     Active Substance: ZOLEDRONIC ACID
     Dosage: UNK (5/100ML)

REACTIONS (3)
  - White blood cell count decreased [Unknown]
  - Fatigue [Not Recovered/Not Resolved]
  - Fatigue [Unknown]
